FAERS Safety Report 8237926-7 (Version None)
Quarter: 2012Q1

REPORT INFORMATION
  Report Type: 
  Country: None (occurrence: None)
  Receive Date: 20120327
  Receipt Date: 20120323
  Transmission Date: 20120608
  Serious: Yes (Death)
  Sender: FDA-Public Use
  Company Number: JP-ASTRAZENECA-2012SE19650

PATIENT
  Age: 85 Year
  Sex: Female

DRUGS (9)
  1. UNASYN [Concomitant]
     Route: 042
     Dates: start: 20120229, end: 20120306
  2. MAGMITT [Concomitant]
     Route: 048
     Dates: end: 20120309
  3. NEXIUM [Suspect]
     Indication: GASTRIC ULCER HAEMORRHAGE
     Route: 048
     Dates: start: 20120130, end: 20120309
  4. AMLODIPINE BESYLATE [Concomitant]
     Route: 048
     Dates: end: 20120309
  5. OTHER ANTIBIOTIC PREPARATIONS(INCLUDING MIXED ANTIBIOTIC [Concomitant]
     Dosage: DOSE UNKNOWN
     Route: 065
  6. RIKKUNSHI-TO [Concomitant]
     Route: 048
     Dates: end: 20120309
  7. MINOCYCLINE HYDROCHLORIDE [Concomitant]
     Route: 048
     Dates: start: 20120306, end: 20120309
  8. EBRANTIL [Concomitant]
     Dosage: 15?4 60 MG TWO TIMES A DAY
     Route: 048
     Dates: start: 20120117, end: 20120309
  9. BESACOLIN [Concomitant]
     Route: 048
     Dates: start: 20120117, end: 20120309

REACTIONS (1)
  - MYOCARDIAL INFARCTION [None]
